FAERS Safety Report 23032400 (Version 1)
Quarter: 2023Q4

REPORT INFORMATION
  Report Type: Report from Study
  Country: SE (occurrence: SE)
  Receive Date: 20231005
  Receipt Date: 20231005
  Transmission Date: 20240110
  Serious: Yes (Other)
  Sender: FDA-Public Use
  Company Number: SE-ASTELLAS-2023US029615

PATIENT
  Age: 45 Year
  Sex: Female

DRUGS (1)
  1. TACROLIMUS [Suspect]
     Active Substance: TACROLIMUS
     Indication: Product used for unknown indication
     Dosage: UNK UNK, UNKNOWN FREQ.
     Route: 065
     Dates: start: 20180917

REACTIONS (19)
  - Pneumothorax [Recovered/Resolved]
  - Transplant rejection [Recovered/Resolved]
  - Renal impairment [Unknown]
  - Nausea [Recovered/Resolved]
  - Transplant rejection [Recovered/Resolved]
  - Transplant dysfunction [Recovered/Resolved]
  - Transplant rejection [Recovered/Resolved]
  - Peripheral swelling [Unknown]
  - Oedema [Unknown]
  - Bacterial infection [Recovered/Resolved with Sequelae]
  - Leukopenia [Recovered/Resolved]
  - Bacterial infection [Recovered/Resolved]
  - Eczema [Recovered/Resolved]
  - Porokeratosis [Recovered/Resolved]
  - Viral infection [Recovered/Resolved]
  - Nephrolithiasis [Recovered/Resolved]
  - Fungal infection [Recovered/Resolved]
  - Bacterial infection [Recovered/Resolved]
  - Muscle spasms [Unknown]

NARRATIVE: CASE EVENT DATE: 20180918
